FAERS Safety Report 9184233 (Version 1)
Quarter: 2013Q1

REPORT INFORMATION
  Report Type: Spontaneous
  Country: US (occurrence: US)
  Receive Date: 20130322
  Receipt Date: 20130322
  Transmission Date: 20140127
  Serious: Yes (Other)
  Sender: FDA-Public Use
  Company Number: US-BRISTOL-MYERS SQUIBB COMPANY-16471096

PATIENT
  Age: 56 Year
  Sex: Female
  Weight: 74.9 kg

DRUGS (4)
  1. ERBITUX [Suspect]
     Indication: COLORECTAL CANCER
     Dates: start: 20110506, end: 201201
  2. FOLINIC ACID [Suspect]
     Indication: COLORECTAL CANCER
     Dates: start: 20110506, end: 201201
  3. FLUOROURACIL [Suspect]
     Indication: COLORECTAL CANCER
     Dates: start: 20110506, end: 201201
  4. IRINOTECAN [Suspect]
     Indication: COLORECTAL CANCER
     Dates: start: 20110506, end: 201201

REACTIONS (1)
  - Malignant neoplasm progression [Unknown]
